FAERS Safety Report 12030515 (Version 2)
Quarter: 2016Q1

REPORT INFORMATION
  Report Type: Report from Study
  Country: AR (occurrence: AR)
  Receive Date: 20160207
  Receipt Date: 20160218
  Transmission Date: 20160526
  Serious: Yes (Death, Hospitalization)
  Sender: FDA-Public Use
  Company Number: PHHY2016AR014910

PATIENT
  Age: 38 Year
  Sex: Female

DRUGS (2)
  1. DABRAFENIB [Suspect]
     Active Substance: DABRAFENIB
     Indication: METASTATIC MALIGNANT MELANOMA
     Dosage: 300 MG, QD
     Route: 048
  2. TRAMETINIB [Suspect]
     Active Substance: TRAMETINIB
     Indication: METASTATIC MALIGNANT MELANOMA
     Dosage: 02 MG, QD
     Route: 048
     Dates: start: 20151112, end: 20160109

REACTIONS (11)
  - Metastatic neoplasm [Unknown]
  - Malignant neoplasm progression [Fatal]
  - Abdominal distension [Fatal]
  - Intestinal obstruction [Fatal]
  - Decreased appetite [Unknown]
  - Pelvic mass [Fatal]
  - Nodular melanoma [Fatal]
  - Nausea [Unknown]
  - Vomiting [Unknown]
  - Abdominal pain [Unknown]
  - Constipation [Unknown]

NARRATIVE: CASE EVENT DATE: 20160109
